FAERS Safety Report 4750260-2 (Version None)
Quarter: 2005Q3

REPORT INFORMATION
  Report Type: 
  Country: None (occurrence: None)
  Receive Date: 20050818
  Receipt Date: 20050812
  Transmission Date: 20060218
  Serious: Yes (Hospitalization)
  Sender: FDA-Public Use
  Company Number: 200510501BNE

PATIENT
  Age: 69 Year
  Sex: Female

DRUGS (13)
  1. MOXIFLOXACIN HYDROCHLORIDE [Suspect]
     Indication: LOWER RESPIRATORY TRACT INFECTION
     Dosage: 400 MG, TOTAL DAILY, ORAL
     Route: 048
     Dates: start: 20050706, end: 20050708
  2. AZATHIOPRINE [Concomitant]
  3. WARFARIN [Concomitant]
  4. DOXAZOSIN [Concomitant]
  5. ADALAT CC [Concomitant]
  6. BENDROFLUMETHIAZIDE [Concomitant]
  7. LEVOTHYROXINE [Concomitant]
  8. QUININE SULFATE [Concomitant]
  9. SERETIDE MITE [Concomitant]
  10. COMBIVENT [Concomitant]
  11. PREDNISOLONE [Concomitant]
  12. CALCICHEW [Concomitant]
  13. ALBUTEROL SULFATE HFA [Concomitant]

REACTIONS (1)
  - DIARRHOEA HAEMORRHAGIC [None]
